FAERS Safety Report 25630416 (Version 1)
Quarter: 2025Q3

REPORT INFORMATION
  Report Type: Spontaneous
  Country: JP (occurrence: JP)
  Receive Date: 20250801
  Receipt Date: 20250801
  Transmission Date: 20251021
  Serious: Yes (Hospitalization, Other)
  Sender: TAKEDA
  Company Number: JP-TAKEDA-2025TJP006434

PATIENT
  Age: 73 Year
  Sex: Female

DRUGS (11)
  1. FRUZAQLA [Suspect]
     Active Substance: FRUQUINTINIB
     Indication: Colon cancer
     Dosage: 5 MILLIGRAM, QD
     Dates: start: 20250516
  2. FRUZAQLA [Suspect]
     Active Substance: FRUQUINTINIB
     Indication: Colon cancer
     Dosage: 5 MILLIGRAM, QD
     Dates: start: 20250527, end: 20250716
  3. DAYVIGO [Concomitant]
     Active Substance: LEMBOREXANT
  4. LANSOPRAZOLE [Concomitant]
     Active Substance: LANSOPRAZOLE
  5. AMLODIPINE [Concomitant]
     Active Substance: AMLODIPINE BESYLATE
  6. MIROGABALIN BESYLATE [Concomitant]
     Active Substance: MIROGABALIN BESYLATE
  7. VIMPAT [Concomitant]
     Active Substance: LACOSAMIDE
  8. LEVETIRACETAM [Concomitant]
     Active Substance: LEVETIRACETAM
  9. VERAPAMIL HYDROCHLORIDE [Concomitant]
     Active Substance: VERAPAMIL HYDROCHLORIDE
  10. EPRAZINONE [Concomitant]
     Active Substance: EPRAZINONE
  11. LATANOPROST [Concomitant]
     Active Substance: LATANOPROST

REACTIONS (4)
  - Colon cancer [Unknown]
  - Nausea [Recovering/Resolving]
  - Rash [Unknown]
  - Stomatitis [Unknown]

NARRATIVE: CASE EVENT DATE: 20250605
